FAERS Safety Report 12678753 (Version 1)
Quarter: 2016Q3

REPORT INFORMATION
  Report Type: Report from Study
  Country: IN (occurrence: IN)
  Receive Date: 20160824
  Receipt Date: 20160824
  Transmission Date: 20161109
  Serious: Yes (Other)
  Sender: FDA-Public Use
  Company Number: IN-ROCHE-1817775

PATIENT
  Age: 30 Year
  Sex: Male

DRUGS (7)
  1. ENTECAVIR. [Concomitant]
     Active Substance: ENTECAVIR
     Route: 048
     Dates: start: 20160318
  2. METFORMIN [Concomitant]
     Active Substance: METFORMIN HYDROCHLORIDE
     Route: 048
     Dates: start: 20160318
  3. SULFAMETHOXAZOLE/TRIMETHOPRIM [Concomitant]
     Active Substance: SULFAMETHOXAZOLE\TRIMETHOPRIM
     Route: 048
     Dates: start: 20160318
  4. OMNACORTIL [Concomitant]
     Active Substance: PREDNISOLONE
     Route: 048
     Dates: start: 20160318
  5. CELLCEPT [Suspect]
     Active Substance: MYCOPHENOLATE MOFETIL\MYCOPHENOLATE MOFETIL HYDROCHLORIDE
     Indication: RENAL TRANSPLANT
     Route: 048
     Dates: start: 20160318
  6. PANTOPRAZOLE [Concomitant]
     Active Substance: PANTOPRAZOLE SODIUM
     Route: 048
     Dates: start: 20160318
  7. TAKFA [Concomitant]
     Dosage: 5-4.5 (UNIT NOT REPORTED)
     Route: 048
     Dates: start: 20160318

REACTIONS (6)
  - Protein total decreased [Recovering/Resolving]
  - Asthenia [Recovering/Resolving]
  - Bone tuberculosis [Recovering/Resolving]
  - Blood calcium decreased [Recovering/Resolving]
  - Diabetes mellitus [Recovered/Resolved]
  - Back pain [Recovering/Resolving]

NARRATIVE: CASE EVENT DATE: 201606
